FAERS Safety Report 6135380-2 (Version None)
Quarter: 2009Q1

REPORT INFORMATION
  Report Type: 
  Country: None (occurrence: None)
  Receive Date: 20090327
  Receipt Date: 20090317
  Transmission Date: 20090719
  Serious: Yes (Hospitalization, Other)
  Sender: FDA-Public Use
  Company Number: US-PFIZER INC-2008091238

PATIENT
  Sex: Female

DRUGS (5)
  1. GLUCOTROL XL [Suspect]
     Indication: TYPE 2 DIABETES MELLITUS
     Route: 048
     Dates: end: 20080101
  2. NORVASC [Concomitant]
  3. ACCUPRIL [Concomitant]
  4. LOPID [Concomitant]
  5. VITAMINS [Concomitant]

REACTIONS (2)
  - DIABETIC COMA [None]
  - HYPOGLYCAEMIA [None]
